FAERS Safety Report 13353894 (Version 1)
Quarter: 2017Q1

REPORT INFORMATION
  Report Type: Spontaneous
  Country: US (occurrence: US)
  Receive Date: 20170320
  Receipt Date: 20170320
  Transmission Date: 20170429
  Serious: Yes (Other)
  Sender: FDA-Public Use
  Company Number: None

PATIENT
  Age: 50 Year
  Sex: Female
  Weight: 78.3 kg

DRUGS (2)
  1. LIDOCAINE HCL INJECTION, USP [Suspect]
     Active Substance: LIDOCAINE HYDROCHLORIDE
     Indication: ANAESTHESIA PROCEDURE
     Dosage: ?          OTHER FREQUENCY:LOCAL ANESTHETIC;?
     Route: 058
     Dates: start: 20170317
  2. LIDOCAINE HCL INJECTION, USP [Suspect]
     Active Substance: LIDOCAINE HYDROCHLORIDE
     Indication: ANAESTHETIC COMPLICATION
     Dosage: ?          OTHER FREQUENCY:LOCAL ANESTHETIC;?
     Route: 058
     Dates: start: 20170317

REACTIONS (1)
  - Anaesthetic complication [None]

NARRATIVE: CASE EVENT DATE: 20170317
